FAERS Safety Report 13915912 (Version 1)
Quarter: 2017Q3

REPORT INFORMATION
  Report Type: Spontaneous
  Country: US (occurrence: US)
  Receive Date: 20170829
  Receipt Date: 20170829
  Transmission Date: 20171127
  Serious: Yes (Other)
  Sender: FDA-Public Use
  Company Number: US-KADMON PHARMACEUTICALS, LLC-KAD201708-000948

PATIENT
  Age: 57 Year
  Sex: Female

DRUGS (3)
  1. RIBASPHERE [Suspect]
     Active Substance: RIBAVIRIN
     Route: 048
     Dates: start: 20130124
  2. TELAPREVIR [Suspect]
     Active Substance: TELAPREVIR
     Dates: start: 20130124
  3. PEG-INTERFERON ALFA-2A [Suspect]
     Active Substance: PEGINTERFERON ALFA-2A
     Dosage: INJECTION
     Route: 058
     Dates: start: 20130124

REACTIONS (4)
  - Haematochezia [Unknown]
  - Headache [Unknown]
  - Constipation [Unknown]
  - Dyschezia [Unknown]
